FAERS Safety Report 19801587 (Version 2)
Quarter: 2021Q3

REPORT INFORMATION
  Report Type: Report from Study
  Country: None (occurrence: US)
  Receive Date: 20210907
  Receipt Date: 20210915
  Transmission Date: 20211014
  Serious: Yes (Hospitalization, Disabling, Other)
  Sender: FDA-Public Use
  Company Number: US-ABBVIE-21K-163-4009035-00

PATIENT
  Sex: Female
  Weight: 95.34 kg

DRUGS (3)
  1. HUMIRA [Suspect]
     Active Substance: ADALIMUMAB
     Route: 058
     Dates: start: 2019, end: 202103
  2. HUMIRA [Suspect]
     Active Substance: ADALIMUMAB
     Indication: ANKYLOSING SPONDYLITIS
     Route: 058
     Dates: start: 2018, end: 2019
  3. HUMIRA [Suspect]
     Active Substance: ADALIMUMAB
     Route: 058
     Dates: start: 202104

REACTIONS (17)
  - Dehydration [Recovered/Resolved]
  - Autoimmune disorder [Unknown]
  - Intervertebral disc protrusion [Unknown]
  - Back pain [Recovered/Resolved]
  - COVID-19 pneumonia [Recovered/Resolved]
  - Neuropathy peripheral [Not Recovered/Not Resolved]
  - Intervertebral disc protrusion [Not Recovered/Not Resolved]
  - Ankle fracture [Unknown]
  - Cardiac disorder [Recovered/Resolved]
  - Cardiomegaly [Recovered/Resolved]
  - Gait inability [Unknown]
  - Therapeutic product effect decreased [Not Recovered/Not Resolved]
  - Benign neoplasm of spinal cord [Recovered/Resolved]
  - Blood potassium decreased [Recovered/Resolved]
  - Loss of personal independence in daily activities [Unknown]
  - Pain [Not Recovered/Not Resolved]
  - Hypoaesthesia [Unknown]

NARRATIVE: CASE EVENT DATE: 2019
